FAERS Safety Report 23798716 (Version 1)
Quarter: 2024Q2

REPORT INFORMATION
  Report Type: Spontaneous
  Country: US (occurrence: None)
  Receive Date: 20240427
  Receipt Date: 20240427
  Transmission Date: 20240716
  Serious: Yes (Disabling, Other)
  Sender: FDA-Public Use
  Company Number: None

PATIENT
  Age: 64 Year
  Sex: Female
  Weight: 56.25 kg

DRUGS (2)
  1. HYDROCODONE BITARTRATE AND ACETAMINOPHEN [Suspect]
     Active Substance: ACETAMINOPHEN\HYDROCODONE BITARTRATE
     Indication: Pain in extremity
     Dosage: OTHER QUANTITY : 1 TABLET(S);?FREQUENCY : TWICE A DAY;?
     Route: 048
  2. ASPIRIN [Concomitant]
     Active Substance: ASPIRIN

REACTIONS (10)
  - Drug ineffective [None]
  - Pain [None]
  - Dry mouth [None]
  - Nasal dryness [None]
  - Nausea [None]
  - Urinary retention [None]
  - Constipation [None]
  - Brain fog [None]
  - Decreased appetite [None]
  - Drug clearance decreased [None]

NARRATIVE: CASE EVENT DATE: 20240418
